FAERS Safety Report 8407826-8 (Version None)
Quarter: 2012Q2

REPORT INFORMATION
  Report Type: 
  Country: None (occurrence: None)
  Receive Date: 20120604
  Receipt Date: 20120523
  Transmission Date: 20120825
  Serious: Yes (Other)
  Sender: FDA-Public Use
  Company Number: JP-BRISTOL-MYERS SQUIBB COMPANY-16639676

PATIENT
  Sex: Male

DRUGS (2)
  1. CISPLATIN [Suspect]
     Indication: PROSTATE CANCER
     Dosage: DAY 1 OF 21 DAY CYCLE.
     Route: 048
  2. DOCETAXEL [Suspect]
     Indication: PROSTATE CANCER
     Dosage: DAY 1 8 AND 15.

REACTIONS (2)
  - GASTROINTESTINAL PERFORATION [None]
  - PERITONITIS [None]
